FAERS Safety Report 24566748 (Version 3)
Quarter: 2025Q4

REPORT INFORMATION
  Report Type: Spontaneous
  Country: US (occurrence: US)
  Receive Date: 20241030
  Receipt Date: 20251209
  Transmission Date: 20260117
  Serious: Yes (Death, Hospitalization, Other)
  Sender: ELI LILLY AND COMPANY
  Company Number: US-ELI_LILLY_AND_COMPANY-US202410019510

PATIENT
  Age: 69 Year
  Sex: Female

DRUGS (17)
  1. TRULICITY [Suspect]
     Active Substance: DULAGLUTIDE
     Indication: Type 2 diabetes mellitus
     Dosage: 0.75 MG, WEEKLY (1/W)
     Route: 065
     Dates: start: 20190501, end: 20200901
  2. TRULICITY [Suspect]
     Active Substance: DULAGLUTIDE
     Indication: Weight control
  3. METFORMIN [Concomitant]
     Active Substance: METFORMIN HYDROCHLORIDE
     Indication: Type 2 diabetes mellitus
     Dosage: UNK UNK, UNKNOWN
     Route: 065
     Dates: start: 20180307, end: 20211115
  4. CHOLINE FENOFIBRATE [Concomitant]
     Active Substance: CHOLINE FENOFIBRATE
     Indication: Hyperlipidaemia
     Dosage: UNK UNK, UNKNOWN
     Route: 065
     Dates: start: 20181004, end: 20190717
  5. CRESTOR [Concomitant]
     Active Substance: ROSUVASTATIN CALCIUM
     Indication: Hyperlipidaemia
     Dosage: UNK UNK, UNKNOWN
     Route: 065
     Dates: start: 20140203, end: 20191115
  6. LOVAZA [Concomitant]
     Active Substance: OMEGA-3-ACID ETHYL ESTERS
     Indication: Blood triglycerides decreased
     Dosage: UNK UNK, UNKNOWN
     Route: 065
     Dates: start: 20140905, end: 20211115
  7. INDAPAMIDE [Concomitant]
     Active Substance: INDAPAMIDE
     Indication: Hypertension
     Dosage: UNK UNK, UNKNOWN
     Route: 065
     Dates: start: 20140225, end: 20211115
  8. SYNTHROID [Concomitant]
     Active Substance: LEVOTHYROXINE SODIUM
     Indication: Hypothyroidism
     Dosage: UNK UNK, UNKNOWN
     Route: 065
     Dates: start: 20140401, end: 20211115
  9. METOPROLOL SUCCINATE [Concomitant]
     Active Substance: METOPROLOL SUCCINATE
     Indication: Hypertension
     Dosage: UNK UNK, UNKNOWN
     Route: 065
     Dates: start: 20140225, end: 20211115
  10. AMLODIPINE [Concomitant]
     Active Substance: AMLODIPINE BESYLATE
     Indication: Hypertension
     Dosage: UNK UNK, UNKNOWN
     Route: 065
     Dates: start: 20140225, end: 20210715
  11. POTASSIUM CHLORIDE [Concomitant]
     Active Substance: POTASSIUM CHLORIDE
     Indication: Hyperkalaemia
     Dosage: UNK UNK, UNKNOWN
     Route: 065
     Dates: start: 20190326, end: 20210715
  12. TRELEGY ELLIPTA [Concomitant]
     Active Substance: FLUTICASONE FUROATE\UMECLIDINIUM BROMIDE\VILANTEROL TRIFENATATE
     Indication: Chronic obstructive pulmonary disease
     Dosage: UNK UNK, UNKNOWN
     Route: 065
     Dates: start: 20190620, end: 20201216
  13. TRILIPIX [Concomitant]
     Active Substance: FENOFIBRIC ACID
     Indication: Hyperlipidaemia
     Dosage: UNK UNK, UNKNOWN
     Route: 065
     Dates: start: 20140225, end: 20211115
  14. NEXIUM [Concomitant]
     Active Substance: ESOMEPRAZOLE MAGNESIUM
     Indication: Gastritis
     Dosage: UNK U, UNKNOWN
     Route: 065
     Dates: start: 20210312, end: 20211115
  15. AMITRIPTYLINE [Concomitant]
     Active Substance: AMITRIPTYLINE
     Indication: Abdominal pain
     Dosage: UNK UNK, UNKNOWN
     Route: 065
     Dates: start: 20210622, end: 20211115
  16. DICYCLOMINE HYDROCHLORIDE [Concomitant]
     Active Substance: DICYCLOMINE HYDROCHLORIDE
     Indication: Abdominal pain
     Dosage: UNK UNK, UNKNOWN
     Route: 065
     Dates: start: 20211008, end: 20211108
  17. PREDNISONE [Concomitant]
     Active Substance: PREDNISONE
     Indication: Polymyalgia rheumatica
     Dosage: UNK UNK, UNKNOWN
     Route: 065
     Dates: start: 20140107, end: 20211115

REACTIONS (18)
  - Death [Fatal]
  - Intestinal ischaemia [Recovered/Resolved]
  - Gallbladder injury [Unknown]
  - Colitis ischaemic [Unknown]
  - Muscle spasms [Unknown]
  - Gastrointestinal necrosis [Unknown]
  - Septic shock [Unknown]
  - Acute kidney injury [Recovered/Resolved]
  - Cholelithiasis [Recovered/Resolved]
  - Impaired gastric emptying [Recovered/Resolved]
  - Cholecystitis [Unknown]
  - Constipation [Recovered/Resolved]
  - Vomiting [Recovered/Resolved]
  - Dyspepsia [Recovered/Resolved]
  - Decreased appetite [Recovered/Resolved]
  - Nausea [Recovered/Resolved]
  - Diarrhoea [Recovered/Resolved]
  - Abdominal pain [Recovered/Resolved]

NARRATIVE: CASE EVENT DATE: 20190529
